FAERS Safety Report 24089580 (Version 1)
Quarter: 2024Q3

REPORT INFORMATION
  Report Type: Spontaneous
  Country: KW (occurrence: KW)
  Receive Date: 20240715
  Receipt Date: 20240715
  Transmission Date: 20241017
  Serious: Yes (Death, Hospitalization)
  Sender: ULTRAGENYX PHARMACEUTICAL
  Company Number: KW-ULTRAGENYX PHARMACEUTICAL INC.-KW-UGX-24-00945

PATIENT
  Age: 21 Year
  Sex: Female

DRUGS (2)
  1. DOJOLVI [Suspect]
     Active Substance: TRIHEPTANOIN
     Indication: Long-chain acyl-coenzyme A dehydrogenase deficiency
     Dosage: 88 MILLILITER, DEVIDED INTO 4 DOSES WITH FOOD
  2. DOJOLVI [Suspect]
     Active Substance: TRIHEPTANOIN
     Dosage: 88 MILLILITER, DEVIDED INTO FOUR DOSEST, WITH FOOD
     Dates: start: 202402

REACTIONS (5)
  - Illness [Fatal]
  - Blood creatine phosphokinase increased [Fatal]
  - Rhabdomyolysis [Fatal]
  - Renal failure [Fatal]
  - Sepsis [Fatal]

NARRATIVE: CASE EVENT DATE: 20240419
